FAERS Safety Report 13434772 (Version 2)
Quarter: 2018Q3

REPORT INFORMATION
  Report Type: Spontaneous
  Country: US (occurrence: US)
  Receive Date: 20170413
  Receipt Date: 20180717
  Transmission Date: 20181010
  Serious: Yes (Other)
  Sender: FDA-Public Use
  Company Number: US-BAYER-2017-064119

PATIENT
  Age: 9 Year
  Sex: Male

DRUGS (1)
  1. KOGENATE FS [Suspect]
     Active Substance: ANTIHEMOPHILIC FACTOR, HUMAN RECOMBINANT
     Indication: HAEMOPHILIA
     Dosage: 1500, TIW
     Route: 042
     Dates: start: 20170317, end: 20170331

REACTIONS (1)
  - Muscle haemorrhage [None]

NARRATIVE: CASE EVENT DATE: 20170317
